FAERS Safety Report 9191624 (Version 3)
Quarter: 2014Q1

REPORT INFORMATION
  Report Type: Spontaneous
  Country: JP (occurrence: JP)
  Receive Date: 20130326
  Receipt Date: 20140109
  Transmission Date: 20141002
  Serious: Yes (Death)
  Sender: FDA-Public Use
  Company Number: JP-ACTELION-A-CH2013-80872

PATIENT
  Age: 78 Year
  Sex: Female
  Weight: 48.8 kg

DRUGS (6)
  1. TRACLEER [Suspect]
     Indication: PULMONARY ARTERIAL HYPERTENSION
     Dosage: 62.5 MG, BID
     Route: 048
     Dates: start: 20130220, end: 20130226
  2. SILDENAFIL CITRATE [Concomitant]
  3. HEPARIN SODIUM [Concomitant]
  4. ISOTONIC SODIUM CHLORIDE SOLUTION [Concomitant]
  5. FUROSEMIDE [Concomitant]
  6. OXYGEN [Concomitant]

REACTIONS (2)
  - Pulmonary hypertension [Fatal]
  - Dyspnoea [Fatal]
